FAERS Safety Report 23557521 (Version 1)
Quarter: 2024Q1

REPORT INFORMATION
  Report Type: Report from Study
  Country: ES (occurrence: ES)
  Receive Date: 20240223
  Receipt Date: 20240223
  Transmission Date: 20240410
  Serious: Yes (Hospitalization)
  Sender: FDA-Public Use
  Company Number: None

PATIENT
  Age: 79 Year
  Sex: Male

DRUGS (6)
  1. PREGABALIN [Suspect]
     Active Substance: PREGABALIN
     Indication: Product used for unknown indication
     Dosage: PREGABALIN (3897A)
     Route: 048
     Dates: start: 20161217, end: 20230809
  2. FENTANYL [Suspect]
     Active Substance: FENTANYL\FENTANYL CITRATE
     Indication: Product used for unknown indication
     Dosage: FENTANYL (1543A)
     Route: 062
     Dates: start: 20230606, end: 20230809
  3. DUTASTERIDE\TAMSULOSIN HYDROCHLORIDE [Concomitant]
     Active Substance: DUTASTERIDE\TAMSULOSIN HYDROCHLORIDE
     Indication: Benign prostatic hyperplasia
     Dosage: 0.5 MG/0.4 MG,30 CAPSULES
     Route: 048
     Dates: start: 20211102, end: 20230809
  4. OXYBUTYNIN [Suspect]
     Active Substance: OXYBUTYNIN\OXYBUTYNIN CHLORIDE
     Indication: Product used for unknown indication
     Dosage: 8 PATCHES
     Route: 065
     Dates: start: 20160523, end: 20230809
  5. PROPIVERINE HYDROCHLORIDE [Concomitant]
     Active Substance: PROPIVERINE HYDROCHLORIDE
     Indication: Product used for unknown indication
     Dosage: 28 CAPSULES,(FORTE)
     Route: 048
     Dates: start: 20220927
  6. CALCIUM\CHOLECALCIFEROL [Suspect]
     Active Substance: CALCIUM\CHOLECALCIFEROL
     Indication: Product used for unknown indication
     Dosage: 30 TABLETS
     Route: 048
     Dates: start: 20190709, end: 20230809

REACTIONS (3)
  - Behaviour disorder [Recovered/Resolved]
  - Extrapyramidal disorder [Recovered/Resolved]
  - Pyrexia [Recovered/Resolved]

NARRATIVE: CASE EVENT DATE: 20230708
